FAERS Safety Report 19576205 (Version 1)
Quarter: 2021Q3

REPORT INFORMATION
  Report Type: Spontaneous
  Country: US (occurrence: US)
  Receive Date: 20210717
  Receipt Date: 20210717
  Transmission Date: 20211014
  Serious: No
  Sender: FDA-Public Use
  Company Number: None

PATIENT
  Age: 56 Year
  Sex: Female

DRUGS (1)
  1. HUMIRA [Suspect]
     Active Substance: ADALIMUMAB
     Indication: COLITIS ULCERATIVE
     Dosage: 1 PEN EVERY WEEK SQ
     Route: 058
     Dates: start: 201708

REACTIONS (2)
  - Drug ineffective [None]
  - Colitis ulcerative [None]

NARRATIVE: CASE EVENT DATE: 202106
